FAERS Safety Report 4343415-2 (Version None)
Quarter: 2004Q1

REPORT INFORMATION
  Report Type: 
  Country: None (occurrence: None)
  Receive Date: 20040325
  Receipt Date: 20040114
  Transmission Date: 20041129
  Serious: No
  Sender: FDA-Public Use
  Company Number: USA040156632

PATIENT
  Age: 60 Year
  Sex: Female

DRUGS (6)
  1. FORTEO [Suspect]
     Indication: OSTEOPOROSIS
     Dates: start: 20040113
  2. PREMARIN [Concomitant]
  3. QVAR (BECLOMETASONE DIPROPIONATE) [Concomitant]
  4. SEREVENT [Concomitant]
  5. CALCIUM [Concomitant]
  6. ZITHROMAX [Concomitant]

REACTIONS (3)
  - HEART RATE INCREASED [None]
  - INJECTION SITE ERYTHEMA [None]
  - SWELLING FACE [None]
